FAERS Safety Report 20608581 (Version 1)
Quarter: 2022Q1

REPORT INFORMATION
  Report Type: Spontaneous
  Country: US (occurrence: None)
  Receive Date: 20220317
  Receipt Date: 20220317
  Transmission Date: 20220423
  Serious: Yes (Other)
  Sender: FDA-Public Use
  Company Number: None

PATIENT
  Sex: Male
  Weight: 60.75 kg

DRUGS (7)
  1. XTANDI [Suspect]
     Active Substance: ENZALUTAMIDE
     Indication: Prostate cancer metastatic
     Dosage: FREQUENCY : DAILY;?
     Route: 048
     Dates: start: 20211217
  2. FAMOTIDINE [Concomitant]
     Active Substance: FAMOTIDINE
  3. IBUPROFEN [Concomitant]
     Active Substance: IBUPROFEN
  4. LUPRON [Concomitant]
     Active Substance: LEUPROLIDE ACETATE
  5. MAGNESIUM [Concomitant]
     Active Substance: MAGNESIUM
  6. MIRAPEX [Concomitant]
     Active Substance: PRAMIPEXOLE DIHYDROCHLORIDE
  7. TAMSULOSIN [Concomitant]
     Active Substance: TAMSULOSIN

REACTIONS (1)
  - Nausea [None]
